FAERS Safety Report 7739224-4 (Version None)
Quarter: 2011Q3

REPORT INFORMATION
  Report Type: 
  Country: None (occurrence: None)
  Receive Date: 20110909
  Receipt Date: 20110907
  Transmission Date: 20111222
  Serious: Yes (Other)
  Sender: FDA-Public Use
  Company Number: US-PFIZER INC-2011088012

PATIENT
  Sex: Female
  Weight: 88 kg

DRUGS (14)
  1. NEXIUM [Concomitant]
     Indication: IRRITABLE BOWEL SYNDROME
  2. AMITRIPTYLINE [Concomitant]
     Indication: GASTRIC DISORDER
     Dosage: UNK, DAILY
  3. VYTORIN [Concomitant]
     Indication: BLOOD CHOLESTEROL ABNORMAL
     Dosage: UNK
  4. CHANTIX [Suspect]
     Dosage: 0.5 MG, 1X/DAY
     Dates: start: 20090101
  5. CHANTIX [Suspect]
     Dosage: 1 MG, 2X/DAY
     Dates: start: 20110401, end: 20110904
  6. XANAX [Concomitant]
     Indication: ANXIETY
     Dosage: 0.25 MG, AS NEEDED
     Route: 048
  7. ACIPHEX [Concomitant]
     Indication: IRRITABLE BOWEL SYNDROME
     Dosage: 40 MG, 1X/DAY
     Route: 048
  8. CHANTIX [Suspect]
     Dosage: 0.5 MG, DAILY
     Route: 048
     Dates: start: 20110407, end: 20110401
  9. CELEXA [Concomitant]
     Indication: ANXIETY
     Dosage: 40 MG, 1X/DAY
  10. LEXAPRO [Concomitant]
     Indication: ANXIETY
     Dosage: 20 MG, 1X/DAY
     Route: 048
  11. CHANTIX [Suspect]
     Indication: SMOKING CESSATION THERAPY
     Dosage: 0.5 MG, 1X/DAY
     Route: 048
     Dates: start: 20080101
  12. NEXIUM [Concomitant]
     Indication: GASTROOESOPHAGEAL REFLUX DISEASE
     Dosage: 40 MG, 2X/DAY
  13. LEXAPRO [Concomitant]
     Indication: STRESS
     Dosage: UNK
  14. VYTORIN [Concomitant]
     Indication: BLOOD TRIGLYCERIDES ABNORMAL

REACTIONS (6)
  - GLUCOSE TOLERANCE IMPAIRED [None]
  - CHOLECYSTECTOMY [None]
  - DEPRESSION [None]
  - RESPIRATORY TRACT INFECTION VIRAL [None]
  - HYPOTHYROIDISM [None]
  - DYSPNOEA [None]
